FAERS Safety Report 12896952 (Version 1)
Quarter: 2016Q4

REPORT INFORMATION
  Report Type: Spontaneous
  Country: US (occurrence: US)
  Receive Date: 20161028
  Receipt Date: 20161028
  Transmission Date: 20170207
  Serious: No
  Sender: FDA-Public Use
  Company Number: None

PATIENT
  Age: 20 Year
  Sex: Female

DRUGS (1)
  1. ENBREL [Suspect]
     Active Substance: ETANERCEPT
     Indication: RHEUMATOID ARTHRITIS
     Route: 058
     Dates: start: 20160923, end: 20161015

REACTIONS (5)
  - Influenza like illness [None]
  - Headache [None]
  - Nausea [None]
  - Fatigue [None]
  - Abdominal pain upper [None]

NARRATIVE: CASE EVENT DATE: 20160925
